FAERS Safety Report 7790880-4 (Version None)
Quarter: 2011Q3

REPORT INFORMATION
  Report Type: 
  Country: None (occurrence: None)
  Receive Date: 20110930
  Receipt Date: 20110922
  Transmission Date: 20111222
  Serious: Yes (Hospitalization)
  Sender: FDA-Public Use
  Company Number: US-ASTRAZENECA-2011SE38764

PATIENT
  Age: 76 Year
  Sex: Female

DRUGS (1)
  1. NEXIUM [Suspect]
     Route: 048

REACTIONS (4)
  - ATRIAL FIBRILLATION [None]
  - TRANSIENT ISCHAEMIC ATTACK [None]
  - INTERVERTEBRAL DISC COMPRESSION [None]
  - MALAISE [None]
